FAERS Safety Report 4818235-2 (Version None)
Quarter: 2005Q3

REPORT INFORMATION
  Report Type: 
  Country: None (occurrence: None)
  Receive Date: 20050929
  Receipt Date: 20050531
  Transmission Date: 20060218
  Serious: No
  Sender: FDA-Public Use
  Company Number: 05P-163-0301934-00

PATIENT
  Age: 72 Year
  Sex: Female
  Weight: 76.2043 kg

DRUGS (11)
  1. HUMIRA [Suspect]
     Indication: RHEUMATOID ARTHRITIS
     Dosage: 40 MG, 1 IN 2 WK, SUBCUTANEOUS
     Route: 058
     Dates: start: 20050301, end: 20050501
  2. WARFARIN SODIUM [Concomitant]
  3. PREDNISONE [Concomitant]
  4. TRAMADOL HYDROCHLORIDE [Concomitant]
  5. METHOTREXATE [Concomitant]
  6. SOTALOL HCL [Concomitant]
  7. DILTIAZEM HCL [Concomitant]
  8. FUROSEMIDE [Concomitant]
  9. DIGOXIN [Concomitant]
  10. FOLIC ACID [Concomitant]
  11. POTASSIUM [Concomitant]

REACTIONS (2)
  - DRUG INEFFECTIVE [None]
  - INJECTION SITE PAIN [None]
